FAERS Safety Report 11637975 (Version 1)
Quarter: 2015Q4

REPORT INFORMATION
  Report Type: Report from Study
  Country: FR (occurrence: FR)
  Receive Date: 20151016
  Receipt Date: 20151016
  Transmission Date: 20160304
  Serious: Yes (Death, Hospitalization, Other)
  Sender: FDA-Public Use
  Company Number: FR-BRISTOL-MYERS SQUIBB COMPANY-BMS-2015-069024

PATIENT
  Sex: Male
  Weight: 62 kg

DRUGS (8)
  1. TOPALGIC                           /00599202/ [Concomitant]
     Active Substance: TRAMADOL
     Indication: PAIN
     Dosage: 200 MG, BID
     Route: 065
     Dates: start: 201303, end: 201308
  2. ENTECAVIR. [Suspect]
     Active Substance: ENTECAVIR
     Indication: HEPATITIS B
     Dosage: 0.5 MG, QD
     Route: 065
     Dates: start: 20121008, end: 201308
  3. ALDACTONE [Concomitant]
     Active Substance: SPIRONOLACTONE
     Indication: OEDEMA
     Dosage: 75 MG, QD
     Route: 065
     Dates: start: 20121008, end: 201308
  4. NOROXINE [Concomitant]
     Active Substance: NORFLOXACIN
     Indication: INFECTION
     Dosage: 400 MG, QD
     Route: 065
     Dates: start: 201303, end: 201308
  5. IMODIUM [Concomitant]
     Active Substance: LOPERAMIDE HYDROCHLORIDE
     Indication: DIARRHOEA
     Dosage: UNK
     Route: 065
     Dates: start: 201303, end: 201308
  6. INEXIUM                            /01479302/ [Concomitant]
     Active Substance: ESOMEPRAZOLE MAGNESIUM
     Indication: GASTRITIS
     Dosage: 40 MG, QD
     Route: 065
     Dates: start: 201112, end: 201308
  7. SEVREDOL [Concomitant]
     Active Substance: MORPHINE
     Indication: PAIN
     Dosage: 10 MG, Q4H
     Route: 065
     Dates: start: 201303, end: 201308
  8. LASILIX                            /00032601/ [Concomitant]
     Active Substance: FUROSEMIDE
     Indication: ASCITES
     Dosage: 40 MG, QD
     Route: 065
     Dates: start: 20130130, end: 201308

REACTIONS (4)
  - General physical health deterioration [Fatal]
  - Hepatic failure [Fatal]
  - Oedema peripheral [Unknown]
  - Dermatitis [Unknown]
